FAERS Safety Report 5600245-9 (Version None)
Quarter: 2008Q1

REPORT INFORMATION
  Report Type: 
  Country: None (occurrence: None)
  Receive Date: 20080123
  Receipt Date: 20080116
  Transmission Date: 20080703
  Serious: Yes (Hospitalization)
  Sender: FDA-Public Use
  Company Number: US-MERCK-0706USA03761

PATIENT
  Age: 53 Year
  Sex: Female
  Weight: 73 kg

DRUGS (20)
  1. FOSAMAX [Suspect]
     Indication: OSTEOPOROSIS
     Route: 048
     Dates: start: 19970922, end: 20060523
  2. FOSAMAX [Suspect]
     Route: 048
  3. PREMPRO [Concomitant]
     Indication: HOT FLUSH
     Route: 065
     Dates: start: 19920101, end: 20020101
  4. FLEXERIL [Concomitant]
     Indication: MUSCLE SPASMS
     Route: 065
     Dates: start: 19900101
  5. NEURONTIN [Concomitant]
     Route: 065
  6. [THERAPY UNSPECIFIED] [Concomitant]
     Route: 065
  7. BECLOVENT [Concomitant]
     Route: 065
  8. REMERON [Concomitant]
     Route: 065
  9. RESTASIS [Concomitant]
     Route: 065
  10. FML [Concomitant]
     Route: 065
  11. SINGULAIR [Concomitant]
     Route: 048
  12. ALBUTEROL [Concomitant]
     Route: 065
  13. CALCIUM (UNSPECIFIED) [Concomitant]
     Route: 065
  14. VITAMINS (UNSPECIFIED) AND MINERALS (UNSPECIFIED) [Concomitant]
     Route: 065
  15. VITAMIN E [Concomitant]
     Route: 065
  16. VITA C [Concomitant]
     Route: 065
  17. TYLENOL [Concomitant]
     Route: 065
  18. EXCEDRIN (ACETAMINOPHEN (+) CAFFEINE) [Concomitant]
     Route: 065
  19. VANCERIL [Concomitant]
     Route: 065
  20. ESTROGENS (UNSPECIFIED) AND PROGESTERONE [Concomitant]
     Route: 065

REACTIONS (57)
  - ANAL FISSURE [None]
  - ANXIETY [None]
  - ARTHRALGIA [None]
  - ASTHENIA [None]
  - BACK PAIN [None]
  - BONE FRAGMENTATION [None]
  - BONE PAIN [None]
  - BRONCHITIS [None]
  - CHRONIC SINUSITIS [None]
  - CONJUNCTIVAL HYPERAEMIA [None]
  - CONTUSION [None]
  - CYST [None]
  - DEPRESSION [None]
  - DIZZINESS [None]
  - DRY EYE [None]
  - DRY MOUTH [None]
  - DRY SKIN [None]
  - EAGLES SYNDROME [None]
  - EAR DISORDER [None]
  - EAR PAIN [None]
  - ENDOMETRIAL DISORDER [None]
  - ERYTHEMA [None]
  - EXOSTOSIS [None]
  - EXTRASYSTOLES [None]
  - EYE PAIN [None]
  - EYELID DISORDER [None]
  - FOOT DEFORMITY [None]
  - HAEMORRHAGE [None]
  - HAEMORRHOIDS [None]
  - HYPERAESTHESIA [None]
  - HYPOREFLEXIA [None]
  - JOINT STIFFNESS [None]
  - LIMB INJURY [None]
  - MITRAL VALVE PROLAPSE [None]
  - MYALGIA [None]
  - NASAL CONGESTION [None]
  - NASOPHARYNGITIS [None]
  - NEUROMA [None]
  - NOCTURIA [None]
  - ORAL TORUS [None]
  - ORTHOPNOEA [None]
  - OTITIS MEDIA [None]
  - PAIN IN EXTREMITY [None]
  - PARAESTHESIA [None]
  - PHOTOPSIA [None]
  - PHOTOSENSITIVITY REACTION [None]
  - POSTMENOPAUSAL HAEMORRHAGE [None]
  - SCAR [None]
  - SEASONAL AFFECTIVE DISORDER [None]
  - TINNITUS [None]
  - UTERINE DISORDER [None]
  - UTERINE MALPOSITION [None]
  - UTERINE PROLAPSE [None]
  - VAGINAL DISORDER [None]
  - VEIN DISORDER [None]
  - VERTIGO [None]
  - VULVOVAGINAL DRYNESS [None]
